FAERS Safety Report 17214896 (Version 7)
Quarter: 2020Q1

REPORT INFORMATION
  Report Type: Report from Study
  Country: BR (occurrence: BR)
  Receive Date: 20191230
  Receipt Date: 20200319
  Transmission Date: 20200409
  Serious: Yes (Hospitalization)
  Sender: FDA-Public Use
  Company Number: BR-JNJFOC-20191109844

PATIENT
  Age: 11 Year
  Sex: Female
  Weight: 63 kg

DRUGS (18)
  1. FOLIC ACID. [Concomitant]
     Active Substance: FOLIC ACID
     Route: 065
     Dates: start: 20190410
  2. VITAMIN D                          /00107901/ [Concomitant]
     Active Substance: ERGOCALCIFEROL
     Route: 065
     Dates: start: 20181226
  3. AZITHROMYCIN ANHYDROUS. [Concomitant]
     Active Substance: AZITHROMYCIN ANHYDROUS
     Route: 065
     Dates: start: 20190801
  4. VITAMIN D                          /00107901/ [Concomitant]
     Active Substance: ERGOCALCIFEROL
     Indication: PROPHYLAXIS
     Dosage: 800 UNSPECIFIED UNITS
     Route: 048
     Dates: start: 20161121, end: 20181025
  5. CALCIUM CARBONATE. [Concomitant]
     Active Substance: CALCIUM CARBONATE
     Route: 065
     Dates: start: 20181226
  6. AZITHROMYCIN ANHYDROUS. [Concomitant]
     Active Substance: AZITHROMYCIN ANHYDROUS
     Indication: PHARYNGITIS
     Dosage: DAILY
     Route: 048
     Dates: start: 20190722, end: 20190726
  7. PREDNISONE. [Concomitant]
     Active Substance: PREDNISONE
     Indication: JUVENILE IDIOPATHIC ARTHRITIS
     Dosage: DAILY
     Route: 048
     Dates: start: 201704, end: 20181002
  8. FOLIC ACID. [Concomitant]
     Active Substance: FOLIC ACID
     Indication: PROPHYLAXIS
     Route: 048
     Dates: start: 201603, end: 20181025
  9. HYDROXYZINE [Concomitant]
     Active Substance: HYDROXYZINE HYDROCHLORIDE
     Indication: SKIN LESION
     Dosage: DAILY
     Route: 048
     Dates: start: 20180417, end: 20180421
  10. ALBENDAZOLE. [Concomitant]
     Active Substance: ALBENDAZOLE
     Indication: PROPHYLAXIS
     Dosage: DAILY
     Route: 048
     Dates: start: 20180320, end: 20180325
  11. PARACETAMOL [Concomitant]
     Active Substance: ACETAMINOPHEN
     Indication: JUVENILE IDIOPATHIC ARTHRITIS
     Dosage: PRN (AS NEEDED)
     Route: 048
     Dates: start: 20181127
  12. METHOTREXATE. [Concomitant]
     Active Substance: METHOTREXATE
     Dosage: DOSE OF 15MG/WEEK, SUM OF 92 WEEKS WERE ADMINISTERED.
     Route: 048
     Dates: start: 2016
  13. FOLIC ACID. [Concomitant]
     Active Substance: FOLIC ACID
     Route: 048
     Dates: start: 20190205
  14. METHYLPREDNISOLONE. [Concomitant]
     Active Substance: METHYLPREDNISOLONE
  15. DIPYRONE [Concomitant]
     Active Substance: DIPYRONE
     Dosage: 500 MG/ML
  16. GOLIMUMAB [Suspect]
     Active Substance: GOLIMUMAB
     Indication: JUVENILE IDIOPATHIC ARTHRITIS
     Dosage: WEEK -0 TO WEEK -92
     Route: 042
     Dates: start: 20171128, end: 20190917
  17. CALCIUM CARBONATE. [Concomitant]
     Active Substance: CALCIUM CARBONATE
     Indication: PROPHYLAXIS
     Route: 048
     Dates: start: 20161121, end: 20181025
  18. IBUPROFEN. [Concomitant]
     Active Substance: IBUPROFEN
     Indication: ARTHRALGIA
     Dosage: PRN (AS NEEDED)
     Route: 048
     Dates: start: 20170817, end: 20181025

REACTIONS (2)
  - Disseminated tuberculosis [Recovering/Resolving]
  - Drug intolerance [Recovered/Resolved]

NARRATIVE: CASE EVENT DATE: 20191022
